FAERS Safety Report 8485648-X (Version None)
Quarter: 2012Q3

REPORT INFORMATION
  Report Type: 
  Country: None (occurrence: None)
  Receive Date: 20120703
  Receipt Date: 20120626
  Transmission Date: 20120928
  Serious: No
  Sender: FDA-Public Use
  Company Number: US-B.I. PHARMACEUTICALS,INC./RIDGEFIELD-2012-BP-14682BP

PATIENT
  Age: 74 Year
  Sex: Female

DRUGS (4)
  1. CARDIZEM [Concomitant]
     Indication: CARDIAC DISORDER
     Dates: start: 20120519, end: 20120611
  2. POTASSIUM [Concomitant]
     Indication: SWELLING
  3. SPIRIVA [Suspect]
     Indication: CHRONIC OBSTRUCTIVE PULMONARY DISEASE
     Route: 055
     Dates: start: 20120525
  4. DIURIL [Concomitant]
     Indication: SWELLING

REACTIONS (4)
  - DYSPNOEA [None]
  - SWELLING [None]
  - PAIN IN JAW [None]
  - DRY MOUTH [None]
